FAERS Safety Report 8769782 (Version 2)
Quarter: 2012Q4

REPORT INFORMATION
  Report Type: Report from Study
  Country: GB (occurrence: GB)
  Receive Date: 20120906
  Receipt Date: 20120917
  Transmission Date: 20130627
  Serious: Yes (Hospitalization)
  Sender: FDA-Public Use
  Company Number: GB-CELGENEUS-167-21880-12090023

PATIENT
  Age: 57 Year
  Sex: Male
  Weight: 62.5 kg

DRUGS (19)
  1. REVLIMID [Suspect]
     Indication: MULTIPLE MYELOMA
     Route: 048
     Dates: start: 20110601, end: 20110621
  2. REVLIMID [Suspect]
     Route: 048
     Dates: start: 20120704, end: 20120724
  3. DEXAMETHASONE [Suspect]
     Indication: MULTIPLE MYELOMA
     Route: 048
     Dates: start: 20110601, end: 20110622
  4. DEXAMETHASONE [Suspect]
     Route: 048
     Dates: start: 20120704, end: 20120725
  5. AMITRIPTYLINE [Concomitant]
     Indication: INSOMNIA
     Route: 048
  6. AMITRIPTYLINE [Concomitant]
     Route: 048
     Dates: start: 20110629
  7. LANSOPRAZOLE [Concomitant]
     Indication: DRUG USE FOR UNKNOWN INDICATION
     Dosage: 30 Milligram
     Route: 048
     Dates: start: 20110601
  8. ASPIRINE [Concomitant]
     Indication: ANTICOAGULANT THERAPY
     Dosage: 75 Milligram
     Route: 048
     Dates: start: 20110601
  9. ACICLOVIR [Concomitant]
     Indication: ANTIVIRAL PROPHYLAXIS
     Dosage: 800 Milligram
     Route: 048
     Dates: start: 20110601
  10. ZOMETA [Concomitant]
     Indication: DRUG USE FOR UNKNOWN INDICATION
     Route: 041
  11. ADCAL [Concomitant]
     Indication: DRUG USE FOR UNKNOWN INDICATION
     Route: 048
  12. GABAPENTIN [Concomitant]
     Indication: CALF PAIN
     Dosage: 800 Milligram
     Route: 048
  13. GABAPENTIN [Concomitant]
     Dosage: 600 Milligram
     Route: 048
     Dates: start: 20110607
  14. AMOXICILLIN [Concomitant]
     Indication: PROPHYLAXIS
     Dosage: 1000 Milligram
     Route: 065
     Dates: start: 200812
  15. CALCICHEW [Concomitant]
     Indication: CALCIUM SUPPLEMENTATION
     Dosage: 4 Tablet
     Route: 048
  16. CO-CODAMOL [Concomitant]
     Indication: LEG PAIN
     Dosage: 4 Tablet
     Route: 048
     Dates: start: 20110928
  17. SODIUM CLODRONATE [Concomitant]
     Indication: PROPHYLAXIS
     Dosage: 1600 Milligram
     Route: 048
     Dates: start: 20090811
  18. SODIUM CLODRONATE [Concomitant]
     Indication: DRUG USE FOR UNKNOWN INDICATION
  19. TRAMADOL [Concomitant]
     Indication: LEG PAIN
     Dosage: 50-100 mg
     Route: 048
     Dates: start: 20111026

REACTIONS (1)
  - Hip arthroplasty [Not Recovered/Not Resolved]
